FAERS Safety Report 26126500 (Version 1)
Quarter: 2025Q4

REPORT INFORMATION
  Report Type: Spontaneous
  Country: US (occurrence: US)
  Receive Date: 20251205
  Receipt Date: 20251205
  Transmission Date: 20260117
  Serious: No
  Sender: BAUSCH AND LOMB
  Company Number: US-BAUSCHBL-2024BNL036575

PATIENT
  Age: 70 Year
  Sex: Female

DRUGS (8)
  1. SOOTHE NIGHT TIME [Suspect]
     Active Substance: MINERAL OIL\PETROLATUM
     Indication: Eye irritation
  2. SOOTHE XP PRESERVATIVE FREE [Suspect]
     Active Substance: LIGHT MINERAL OIL\MINERAL OIL
     Indication: Dry eye
     Dosage: PATIENT USED SUSPECT PRODUCT AT NIGHT TIME IN BOTH EYES FOR DRY EYES.
     Route: 047
  3. SOOTHE XP PRESERVATIVE FREE [Suspect]
     Active Substance: LIGHT MINERAL OIL\MINERAL OIL
  4. SOOTHE XP [Suspect]
     Active Substance: LIGHT MINERAL OIL\MINERAL OIL
     Indication: Product used for unknown indication
  5. REFRESH RELIEVA PF [Concomitant]
     Active Substance: CARBOXYMETHYLCELLULOSE SODIUM\GLYCERIN
  6. WATER [Suspect]
     Active Substance: WATER
     Indication: Foreign body sensation in eyes
     Route: 047
  7. WATER [Suspect]
     Active Substance: WATER
  8. XIIDRA [Suspect]
     Active Substance: LIFITEGRAST
     Indication: Product used for unknown indication
     Route: 047

REACTIONS (15)
  - Skin exfoliation [Unknown]
  - Visual impairment [Unknown]
  - Eye pruritus [Unknown]
  - Ocular hyperaemia [Unknown]
  - Chalazion [Unknown]
  - Foreign body sensation in eyes [Unknown]
  - Product availability issue [Unknown]
  - Product substitution issue [Unknown]
  - Exposure via skin contact [Unknown]
  - Accidental exposure to product [Unknown]
  - Wrong dose [Unknown]
  - Wrong technique in product usage process [Unknown]
  - Product physical consistency issue [Unknown]
  - Product delivery mechanism issue [Unknown]
  - Patient dissatisfaction with treatment [Unknown]

NARRATIVE: CASE EVENT DATE: 20250101
